FAERS Safety Report 15920141 (Version 1)
Quarter: 2019Q1

REPORT INFORMATION
  Report Type: Spontaneous
  Country: US (occurrence: US)
  Receive Date: 20190205
  Receipt Date: 20190205
  Transmission Date: 20190417
  Serious: Yes (Life-Threatening, Hospitalization, Other)
  Sender: FDA-Public Use
  Company Number: US-GILEAD-2019-0388648

PATIENT
  Age: 51 Year
  Sex: Male
  Weight: 68.5 kg

DRUGS (1)
  1. YESCARTA [Suspect]
     Active Substance: AXICABTAGENE CILOLEUCEL
     Indication: DIFFUSE LARGE B-CELL LYMPHOMA
     Dosage: UNK, SINGLE
     Route: 042
     Dates: start: 20181030, end: 20181030

REACTIONS (5)
  - Thrombocytopenia [Not Recovered/Not Resolved]
  - Cytokine release syndrome [Recovered/Resolved]
  - Tremor [Recovered/Resolved]
  - Anaemia [Not Recovered/Not Resolved]
  - Headache [Recovered/Resolved]

NARRATIVE: CASE EVENT DATE: 20181031
